FAERS Safety Report 5034001-X (Version None)
Quarter: 2006Q2

REPORT INFORMATION
  Report Type: 
  Country: None (occurrence: None)
  Receive Date: 20060626
  Receipt Date: 20060619
  Transmission Date: 20061013
  Serious: Yes (Other)
  Sender: FDA-Public Use
  Company Number: PHEH2006US08023

PATIENT
  Age: 57 Year
  Sex: Female

DRUGS (2)
  1. TEGRETOL [Suspect]
     Indication: CONVULSION
     Dosage: 200 MG, QD
     Route: 048
     Dates: start: 19810101, end: 20060531
  2. TEGRETOL [Suspect]
     Dosage: 200 MG, BID
     Route: 048
     Dates: start: 20060601

REACTIONS (2)
  - GRAND MAL CONVULSION [None]
  - MENTAL IMPAIRMENT [None]
